FAERS Safety Report 16490550 (Version 1)
Quarter: 2019Q2

REPORT INFORMATION
  Report Type: Spontaneous
  Country: US (occurrence: US)
  Receive Date: 20190628
  Receipt Date: 20190628
  Transmission Date: 20190711
  Serious: No
  Sender: FDA-Public Use
  Company Number: PHEH2019US027227

PATIENT
  Sex: Female
  Weight: 49.9 kg

DRUGS (2)
  1. TIMOLOL. [Suspect]
     Active Substance: TIMOLOL
     Indication: GLAUCOMA
     Dosage: 1 GTT, QD (IN THE MORNING)
     Route: 065
  2. LATANOPROST. [Suspect]
     Active Substance: LATANOPROST
     Indication: GLAUCOMA
     Dosage: 1 GTT, QD (EVERY NIGHT)
     Route: 065
     Dates: start: 201905

REACTIONS (1)
  - Dark circles under eyes [Not Recovered/Not Resolved]
